FAERS Safety Report 6848974-3 (Version None)
Quarter: 2010Q3

REPORT INFORMATION
  Report Type: 
  Country: None (occurrence: None)
  Receive Date: 20100716
  Receipt Date: 20070922
  Transmission Date: 20110219
  Serious: Yes (Other)
  Sender: FDA-Public Use
  Company Number: US-PFIZER INC-2007081910

PATIENT
  Sex: Male
  Weight: 90.7 kg

DRUGS (7)
  1. CHANTIX [Suspect]
     Indication: EX-TOBACCO USER
     Route: 048
     Dates: start: 20070901
  2. LAMICTAL [Concomitant]
  3. MIRAPEX [Concomitant]
  4. PROSCAR [Concomitant]
     Dates: start: 20070701
  5. TAMSULOSIN HCL [Concomitant]
  6. AMBIEN [Concomitant]
  7. CAFFEINE [Concomitant]

REACTIONS (1)
  - HYPERTENSION [None]
